FAERS Safety Report 4618843-8 (Version None)
Quarter: 2005Q1

REPORT INFORMATION
  Report Type: 
  Country: None (occurrence: None)
  Receive Date: 20050323
  Receipt Date: 20050310
  Transmission Date: 20050727
  Serious: No
  Sender: FDA-Public Use
  Company Number: USA031050668

PATIENT
  Age: 33 Year
  Sex: Female
  Weight: 62 kg

DRUGS (4)
  1. ZYPREXA [Suspect]
     Indication: BIPOLAR I DISORDER
     Dosage: 10 MG/ 2 IN THE MORNING
     Dates: start: 20031024
  2. ZYPREXA [Suspect]
     Indication: MANIA
     Dosage: 10 MG/ 2 IN THE MORNING
     Dates: start: 20031024
  3. ZYPREXA [Suspect]
     Indication: PSYCHOTIC DISORDER
     Dosage: 10 MG/ 2 IN THE MORNING
     Dates: start: 20031024
  4. HALDOL [Concomitant]

REACTIONS (2)
  - DRUG EXPOSURE DURING PREGNANCY [None]
  - METRORRHAGIA [None]
